FAERS Safety Report 14519941 (Version 1)
Quarter: 2018Q1

REPORT INFORMATION
  Report Type: Spontaneous
  Country: US (occurrence: US)
  Receive Date: 20180212
  Receipt Date: 20180212
  Transmission Date: 20180509
  Serious: No
  Sender: FDA-Public Use
  Company Number: US-TEVA-2018-US-847220

PATIENT
  Sex: Female

DRUGS (16)
  1. DULOXETINE. [Concomitant]
     Active Substance: DULOXETINE
     Dosage: 300 MILLIGRAM DAILY; STARTED 20 YEARS AGO
  2. VITAMIN D3 [Concomitant]
     Active Substance: CHOLECALCIFEROL
     Indication: SUPPLEMENTATION THERAPY
     Dosage: 1000 IU (INTERNATIONAL UNIT) DAILY; TAKING FOR YEARS AND YEARS
  3. LYRICA [Suspect]
     Active Substance: PREGABALIN
     Dosage: 50 MILLIGRAM DAILY;
  4. TORSEMIDE. [Concomitant]
     Active Substance: TORSEMIDE
     Indication: DIURETIC THERAPY
     Dosage: STARTED USING 20 YEARS AGO
  5. CALCIUM [Concomitant]
     Active Substance: CALCIUM
     Indication: SUPPLEMENTATION THERAPY
     Dosage: 600 MILLIGRAM DAILY; TAKING FOR YEARS AND YEARS
  6. FISH OIL [Interacting]
     Active Substance: FISH OIL
     Route: 065
  7. WARFARIN [Suspect]
     Active Substance: WARFARIN
     Indication: HYPERCOAGULATION
     Dosage: 1 GRAM DAILY; TWO 1 GRAM; USING FOR YEARS
     Route: 065
     Dates: start: 1986
  8. METOPROLOL. [Concomitant]
     Active Substance: METOPROLOL
     Dosage: 25 MILLIGRAM DAILY; STARTED TWO YEARS AGO
  9. LYRICA [Suspect]
     Active Substance: PREGABALIN
     Dosage: 300 MG PER DAY
     Route: 065
  10. VITAMIN B COMPLEX [Concomitant]
     Active Substance: CYANOCOBALAMIN\DEXPANTHENOL\NIACINAMIDE\PYRIDOXINE HYDROCHLORIDE\RIBOFLAVIN 5^-PHOSPHATE SODIUM\THIAMINE HYDROCHLORIDE\VITAMIN B COMPLEX
     Dosage: DOSE: UNKNOWN. STARTED USING YEARS AGO.
  11. POTASSIUM CHLORIDE. [Concomitant]
     Active Substance: POTASSIUM CHLORIDE
     Indication: SUPPLEMENTATION THERAPY
     Dosage: TWO 10MEQ; STARTED USING 20 YEARS AGO.
  12. LEVOTHYROXIN [Concomitant]
     Active Substance: LEVOTHYROXINE
     Indication: THYROID THERAPY
     Dosage: 25 MICROGRAM DAILY; STARTED ABOUT 7 YEARS AGO
  13. PLAQUENIL [Concomitant]
     Active Substance: HYDROXYCHLOROQUINE SULFATE
     Dosage: 200 MILLIGRAM DAILY;
  14. SENOKOT [Concomitant]
     Active Substance: SENNOSIDES
     Dosage: THREE PER DAY, STARTED USING 5 YEARS AGO
  15. MAGNESIUM [Concomitant]
     Active Substance: MAGNESIUM
     Indication: SUPPLEMENTATION THERAPY
     Dosage: 500 MILLIGRAM DAILY; TAKING FOR YEARS AND YEARS
  16. DAYPRO [Concomitant]
     Active Substance: OXAPROZIN
     Indication: ARTHRITIS
     Dosage: 600 MILLIGRAM DAILY; STARTED ABOUT 30 YEARS AGO

REACTIONS (2)
  - Coagulopathy [Unknown]
  - Drug interaction [Unknown]
